FAERS Safety Report 17202756 (Version 1)
Quarter: 2019Q4

REPORT INFORMATION
  Report Type: Spontaneous
  Country: JP (occurrence: JP)
  Receive Date: 20191226
  Receipt Date: 20191226
  Transmission Date: 20200122
  Serious: Yes (Hospitalization, Other)
  Sender: FDA-Public Use
  Company Number: JP-PFIZER INC-2019549049

PATIENT
  Age: 42 Year
  Sex: Male
  Weight: 100 kg

DRUGS (8)
  1. PITAVASTATIN CA [Concomitant]
     Active Substance: PITAVASTATIN CALCIUM
     Dosage: 1 MG, 1X/DAY (ONE TABLET ONCE DAILY AFTER BREAKFAST)
  2. HEMOPORISON [Concomitant]
     Dosage: UNK, 1X/DAY (ONCE DAILY AFTER DEFECATION)
  3. AZILVA [Concomitant]
     Active Substance: AZILSARTAN KAMEDOXOMIL
     Dosage: 20 MG, 1X/DAY (ONE TABLET ONCE DAILY AFTER BREAKFAST)
  4. ANTEBATE [Concomitant]
     Active Substance: BETAMETHASONE DIPROPIONATE
     Dosage: 5 G, 2X/DAY (TWICE DAILY IN THE MORNING AND EVENING)
  5. BOSULIF [Suspect]
     Active Substance: BOSUTINIB MONOHYDRATE
     Indication: CHRONIC MYELOID LEUKAEMIA
     Dosage: 500 MG, DAILY
     Route: 048
     Dates: start: 20170804
  6. MAGNESIUM OXIDE. [Concomitant]
     Active Substance: MAGNESIUM OXIDE
     Dosage: 660 MG, 1X/DAY (TWO TABLET ONCE DAILY AFTER BREAKFAST)
  7. LAFUTIDINE [Concomitant]
     Active Substance: LAFUTIDINE
     Dosage: 10 MG, 1X/DAY (ONE TABLET ONCE DAILY AFTER BREAKFAST)
  8. KETOPROFEN. [Concomitant]
     Active Substance: KETOPROFEN
     Dosage: 40 MG, 1X/DAY (ONCE DAILY AT NIGHT)

REACTIONS (5)
  - Angina unstable [Unknown]
  - Rash [Recovered/Resolved]
  - Chest discomfort [Unknown]
  - Angina pectoris [Unknown]
  - Influenza [Unknown]

NARRATIVE: CASE EVENT DATE: 201912
